FAERS Safety Report 20897305 (Version 1)
Quarter: 2022Q2

REPORT INFORMATION
  Report Type: Spontaneous
  Country: ES (occurrence: ES)
  Receive Date: 20220531
  Receipt Date: 20220531
  Transmission Date: 20220721
  Serious: Yes (Hospitalization)
  Sender: FDA-Public Use
  Company Number: None

PATIENT
  Age: 15 Year
  Sex: Male

DRUGS (4)
  1. LINEZOLID [Suspect]
     Active Substance: LINEZOLID
     Indication: Septic arthritis staphylococcal
     Dosage: 600 MG EVERY 12 HOURS
     Route: 042
     Dates: start: 20220314, end: 20220316
  2. CLINDAMYCIN PHOSPHATE [Suspect]
     Active Substance: CLINDAMYCIN PHOSPHATE
     Indication: Septic arthritis staphylococcal
     Dosage: 900MG EVERY 6 HOURS
     Route: 042
     Dates: start: 20220217, end: 20220314
  3. CLOXACILLIN [Suspect]
     Active Substance: CLOXACILLIN
     Indication: Septic arthritis staphylococcal
     Dosage: 2G EVERY 4 HOURS
     Route: 042
     Dates: start: 20220224, end: 20220318
  4. METAMIZOLE [Suspect]
     Active Substance: METAMIZOLE
     Indication: Pain
     Dosage: 1000 MG EVERY 12 HOURS;
     Route: 030
     Dates: start: 20220224, end: 20220318

REACTIONS (6)
  - Pyrexia [Recovered/Resolved]
  - Rash maculo-papular [Recovered/Resolved]
  - Eosinophilia [Recovered/Resolved]
  - Off label use [Unknown]
  - Off label use [Unknown]
  - Off label use [Unknown]

NARRATIVE: CASE EVENT DATE: 20220217
